FAERS Safety Report 6906099-2 (Version None)
Quarter: 2010Q3

REPORT INFORMATION
  Report Type: 
  Country: None (occurrence: None)
  Receive Date: 20100804
  Receipt Date: 20090522
  Transmission Date: 20110219
  Serious: No
  Sender: FDA-Public Use
  Company Number: US-PFIZER INC-2009153056

PATIENT
  Sex: Female
  Weight: 79.365 kg

DRUGS (3)
  1. ZOLOFT [Suspect]
     Indication: GENERALISED ANXIETY DISORDER
     Dosage: 75 MG, 1X/DAY
     Route: 048
     Dates: start: 20080601, end: 20090104
  2. CLIMARA [Concomitant]
     Dosage: UNK
  3. PROMETRIUM [Concomitant]
     Dosage: UNK

REACTIONS (7)
  - ANXIETY [None]
  - INFLUENZA LIKE ILLNESS [None]
  - INSOMNIA [None]
  - PAIN [None]
  - SENSORY DISTURBANCE [None]
  - STRESS [None]
  - WITHDRAWAL SYNDROME [None]
